FAERS Safety Report 15644952 (Version 2)
Quarter: 2018Q4

REPORT INFORMATION
  Report Type: Spontaneous
  Country: CN (occurrence: CN)
  Receive Date: 20181121
  Receipt Date: 20181130
  Transmission Date: 20190205
  Serious: Yes (Hospitalization)
  Sender: FDA-Public Use
  Company Number: CN-ASTRAZENECA-2018SF52679

PATIENT
  Age: 70 Year
  Sex: Female

DRUGS (4)
  1. ICOTINIB HYDROCHLORIDE [Concomitant]
     Active Substance: ICOTINIB HYDROCHLORIDE
     Indication: LUNG NEOPLASM MALIGNANT
  2. IRESSA [Suspect]
     Active Substance: GEFITINIB
     Indication: LUNG NEOPLASM MALIGNANT
     Dosage: DAILY
     Route: 048
     Dates: start: 20181114
  3. ASPIRIN. [Suspect]
     Active Substance: ASPIRIN
     Route: 065
  4. TAGRISSO [Suspect]
     Active Substance: OSIMERTINIB
     Indication: LUNG NEOPLASM MALIGNANT
     Dosage: DAILY
     Route: 048
     Dates: start: 20181114

REACTIONS (2)
  - Skin discolouration [Recovered/Resolved]
  - Lip swelling [Recovered/Resolved]

NARRATIVE: CASE EVENT DATE: 20181114
